FAERS Safety Report 14267647 (Version 1)
Quarter: 2017Q4

REPORT INFORMATION
  Report Type: Spontaneous
  Country: US (occurrence: US)
  Receive Date: 20171210
  Receipt Date: 20171210
  Transmission Date: 20180321
  Serious: Yes (Other)
  Sender: FDA-Public Use
  Company Number: None

PATIENT
  Age: 54 Year
  Sex: Female
  Weight: 99.45 kg

DRUGS (3)
  1. ESTROGEN PATCHES [Concomitant]
  2. LEVOTHROXINE [Concomitant]
     Active Substance: LEVOTHYROXINE
  3. LEVAQUIN [Suspect]
     Active Substance: LEVOFLOXACIN
     Indication: INFECTION
     Dates: start: 19901210, end: 19901212

REACTIONS (3)
  - Tenoplasty [None]
  - Tendon disorder [None]
  - Back pain [None]

NARRATIVE: CASE EVENT DATE: 19901210
